FAERS Safety Report 10869050 (Version 1)
Quarter: 2015Q1

REPORT INFORMATION
  Report Type: Spontaneous
  Country: US (occurrence: US)
  Receive Date: 20150225
  Receipt Date: 20150225
  Transmission Date: 20150721
  Serious: No
  Sender: FDA-Public Use
  Company Number: US-ENDO PHARMACEUTICALS INC.-HYDX20140005

PATIENT
  Sex: Male

DRUGS (1)
  1. HYDROXYZINE HYDROCHLORIDE TABLETS [Suspect]
     Active Substance: HYDROXYZINE HYDROCHLORIDE
     Indication: PRURITUS
     Route: 065

REACTIONS (1)
  - Drug ineffective [Unknown]
